FAERS Safety Report 10201367 (Version 1)
Quarter: 2014Q2

REPORT INFORMATION
  Report Type: Spontaneous
  Country: ZA (occurrence: ZA)
  Receive Date: 20140528
  Receipt Date: 20140528
  Transmission Date: 20141212
  Serious: Yes (Hospitalization, Other)
  Sender: FDA-Public Use
  Company Number: ZA-SA-2014SA069583

PATIENT
  Sex: Male
  Weight: 2.2 kg

DRUGS (10)
  1. VITAMINS NOS [Concomitant]
     Indication: VITAMIN SUPPLEMENTATION
     Route: 064
     Dates: start: 201306
  2. FOLIC ACID [Concomitant]
     Indication: VITAMIN SUPPLEMENTATION
     Route: 064
     Dates: start: 201306
  3. BILOCOR [Concomitant]
     Indication: HEART RATE INCREASED
     Route: 064
     Dates: start: 201306
  4. NASONEX [Concomitant]
     Indication: NASAL CONGESTION
     Route: 064
     Dates: start: 20130710
  5. INSULIN GLARGINE [Suspect]
     Indication: MATERNAL EXPOSURE TIMING UNSPECIFIED
     Route: 064
     Dates: start: 201306, end: 201310
  6. INSULIN GLARGINE [Suspect]
     Indication: MATERNAL EXPOSURE TIMING UNSPECIFIED
     Dosage: DOSE: 12UNITS IN MORNING, 6 UNITS IN EVENING
     Route: 064
     Dates: start: 201310, end: 201312
  7. INSULIN GLARGINE [Suspect]
     Indication: MATERNAL EXPOSURE TIMING UNSPECIFIED
     Route: 063
     Dates: start: 201312
  8. APIDRA [Suspect]
     Indication: MATERNAL EXPOSURE TIMING UNSPECIFIED
     Route: 064
     Dates: start: 201306, end: 201310
  9. APIDRA [Suspect]
     Indication: MATERNAL EXPOSURE TIMING UNSPECIFIED
     Dosage: DOSE: 6 UNITS BEFORE EACH MEAL PLUS CORRECTION DOSE
     Route: 064
     Dates: start: 201310, end: 201312
  10. APIDRA [Suspect]
     Indication: MATERNAL EXPOSURE TIMING UNSPECIFIED
     Route: 063
     Dates: start: 201312

REACTIONS (4)
  - Neonatal respiratory distress syndrome [Unknown]
  - Exposure during breast feeding [Unknown]
  - Foetal growth restriction [Unknown]
  - Exposure during pregnancy [Unknown]
